FAERS Safety Report 7122696-6 (Version None)
Quarter: 2010Q4

REPORT INFORMATION
  Report Type: 
  Country: None (occurrence: None)
  Receive Date: 20101124
  Receipt Date: 20101117
  Transmission Date: 20110411
  Serious: Yes (Other)
  Sender: FDA-Public Use
  Company Number: DE-BAYER-201047745GPV

PATIENT
  Sex: Male

DRUGS (1)
  1. LEVITRA [Suspect]
     Indication: PRODUCT USED FOR UNKNOWN INDICATION
     Dosage: TOTAL DAILY DOSE: 10 MG  UNIT DOSE: 20 MG
     Route: 048
     Dates: start: 20101011

REACTIONS (6)
  - CHEMICAL BURN OF RESPIRATORY TRACT [None]
  - DYSPHONIA [None]
  - FLATULENCE [None]
  - GENITAL PAIN [None]
  - THROAT IRRITATION [None]
  - VOMITING [None]
